FAERS Safety Report 6103990-4 (Version None)
Quarter: 2009Q1

REPORT INFORMATION
  Report Type: 
  Country: None (occurrence: None)
  Receive Date: 20090305
  Receipt Date: 20090226
  Transmission Date: 20090719
  Serious: Yes (Life-Threatening, Hospitalization)
  Sender: FDA-Public Use
  Company Number: DE-MERCK-0902DEU00385

PATIENT
  Age: 77 Year
  Sex: Male
  Weight: 80 kg

DRUGS (16)
  1. ZOCOR [Suspect]
     Indication: HYPERLIPIDAEMIA
     Route: 048
     Dates: end: 20080306
  2. ASPIRIN [Suspect]
     Indication: CORONARY ARTERY DISEASE
     Route: 048
     Dates: end: 20080306
  3. PHENPROCOUMON [Suspect]
     Indication: ATRIAL FLUTTER
     Route: 048
     Dates: end: 20080306
  4. PREDNISOLONE [Suspect]
     Indication: IDIOPATHIC THROMBOCYTOPENIC PURPURA
     Route: 048
     Dates: end: 20080306
  5. PREDNISOLONE [Suspect]
     Route: 048
     Dates: start: 20080309
  6. INSULIN, NEUTRAL [Concomitant]
     Indication: GLUCOSE TOLERANCE IMPAIRED
     Route: 058
  7. ALLOPURINOL [Concomitant]
     Indication: RENAL IMPAIRMENT
     Route: 048
     Dates: end: 20080306
  8. BISOPROLOL [Concomitant]
     Indication: HYPERTENSION
     Route: 048
  9. DIGITOXIN [Concomitant]
     Indication: ATRIAL FLUTTER
     Route: 048
  10. HYDROCHLOROTHIAZIDE [Concomitant]
     Indication: HYPERTENSION
     Route: 048
  11. ISOSORBIDE MONONITRATE [Concomitant]
     Indication: CORONARY ARTERY DISEASE
     Route: 048
  12. MAGALDRATE [Concomitant]
     Indication: DYSPEPSIA
     Route: 048
  13. MOLSIDOMINE [Concomitant]
     Indication: CORONARY ARTERY DISEASE
     Route: 048
  14. PANTOPRAZOLE SODIUM [Concomitant]
     Indication: PROPHYLAXIS AGAINST GASTROINTESTINAL ULCER
     Route: 048
  15. RAMIPRIL [Concomitant]
     Indication: HYPERTENSION
     Route: 048
  16. SPIRONOLACTONE [Concomitant]
     Indication: CARDIAC FAILURE
     Route: 048

REACTIONS (2)
  - GASTRITIS EROSIVE [None]
  - LOWER GASTROINTESTINAL HAEMORRHAGE [None]
